FAERS Safety Report 4314525-0 (Version None)
Quarter: 2004Q1

REPORT INFORMATION
  Report Type: 
  Country: None (occurrence: None)
  Receive Date: 20040308
  Receipt Date: 20040225
  Transmission Date: 20041129
  Serious: Yes (Hospitalization)
  Sender: FDA-Public Use
  Company Number: 2004198799DE

PATIENT
  Sex: Male

DRUGS (3)
  1. BEXTRA [Suspect]
     Dosage: ORAL
     Route: 048
     Dates: end: 20040127
  2. REMERGIL (MIRTAZAPINE) [Suspect]
  3. EDRONAX (REBOXETINE) [Concomitant]

REACTIONS (5)
  - ARTHRALGIA [None]
  - CONDITION AGGRAVATED [None]
  - DEPRESSION [None]
  - DRUG INTERACTION [None]
  - SOMNOLENCE [None]
